FAERS Safety Report 23852286 (Version 1)
Quarter: 2024Q2

REPORT INFORMATION
  Report Type: Spontaneous
  Country: GB (occurrence: GB)
  Receive Date: 20240514
  Receipt Date: 20240514
  Transmission Date: 20240715
  Serious: Yes (Other)
  Sender: FDA-Public Use
  Company Number: None

PATIENT
  Age: 82 Year
  Sex: Male
  Weight: 86 kg

DRUGS (8)
  1. LEVOTHYROXINE SODIUM [Suspect]
     Active Substance: LEVOTHYROXINE SODIUM
     Dosage: IN THE MORNING FOR UNDERACTIVE THYROID
     Route: 065
     Dates: start: 20240416, end: 20240501
  2. CLARITHROMYCIN [Concomitant]
     Active Substance: CLARITHROMYCIN
     Dates: start: 20240327, end: 20240401
  3. AMOXICILLIN\CLAVULANATE POTASSIUM [Concomitant]
     Active Substance: AMOXICILLIN\CLAVULANATE POTASSIUM
     Dosage: TIME INTERVAL: 0.33333333 DAYS
     Dates: start: 20240419, end: 20240426
  4. AMOXICILLIN [Concomitant]
     Active Substance: AMOXICILLIN
     Dosage: TIME INTERVAL: 0.33333333 DAYS: (PLEASE COMPLETE THE COURS...
     Dates: start: 20240321, end: 20240328
  5. TRIPTORELIN [Concomitant]
     Active Substance: TRIPTORELIN
     Dosage: 6 MONTHLY. STARTING ON 2.5.2020
     Dates: start: 20231123
  6. OLANZAPINE [Concomitant]
     Active Substance: OLANZAPINE
     Dosage: TAKE 1/2 TABLET DAILY
     Dates: start: 20231128
  7. BALNEUM [Concomitant]
     Dates: start: 20240502
  8. SERTRALINE [Concomitant]
     Active Substance: SERTRALINE HYDROCHLORIDE
     Dates: start: 20231128

REACTIONS (1)
  - Rash pruritic [Recovering/Resolving]
